FAERS Safety Report 5387838-1 (Version None)
Quarter: 2007Q3

REPORT INFORMATION
  Report Type: 
  Country: None (occurrence: None)
  Receive Date: 20070716
  Receipt Date: 20060717
  Transmission Date: 20080115
  Serious: No
  Sender: FDA-Public Use
  Company Number: A0612259A

PATIENT
  Age: 37 Year
  Sex: Male

DRUGS (1)
  1. NICORETTE (MINT) [Suspect]

REACTIONS (3)
  - HEART RATE INCREASED [None]
  - INTENTIONAL DRUG MISUSE [None]
  - NERVOUSNESS [None]
